FAERS Safety Report 15651381 (Version 5)
Quarter: 2019Q1

REPORT INFORMATION
  Report Type: Report from Study
  Country: US (occurrence: US)
  Receive Date: 20181123
  Receipt Date: 20190128
  Transmission Date: 20190417
  Serious: No
  Sender: FDA-Public Use
  Company Number: US-SA-2018SA318865

PATIENT
  Age: 7 Year
  Sex: Male

DRUGS (4)
  1. AGALSIDASE BETA [Suspect]
     Active Substance: AGALSIDASE BETA
     Dosage: 40;Q2
     Route: 041
     Dates: start: 20180723, end: 20190116
  2. AGALSIDASE BETA [Suspect]
     Active Substance: AGALSIDASE BETA
     Indication: FABRY^S DISEASE
     Dosage: DOSE: 8 CCS
     Route: 041
  3. PREDNISONE. [Concomitant]
     Active Substance: PREDNISONE
  4. AGALSIDASE BETA [Suspect]
     Active Substance: AGALSIDASE BETA
     Dosage: 1 MG/KG, QOW
     Route: 041

REACTIONS (7)
  - Weight increased [Recovering/Resolving]
  - Rash [Recovering/Resolving]
  - Chest discomfort [Unknown]
  - Infusion related reaction [Unknown]
  - Flushing [Recovering/Resolving]
  - Erythema [Recovering/Resolving]
  - Drug specific antibody present [Unknown]

NARRATIVE: CASE EVENT DATE: 20181116
